FAERS Safety Report 7180094-3 (Version None)
Quarter: 2010Q4

REPORT INFORMATION
  Report Type: 
  Country: None (occurrence: None)
  Receive Date: 20101208
  Receipt Date: 20101119
  Transmission Date: 20110411
  Serious: Yes (Other)
  Sender: FDA-Public Use
  Company Number: 2010P1002808

PATIENT
  Age: 47 Year
  Sex: Male
  Weight: 113 kg

DRUGS (11)
  1. WARFARIN (NO PRE. NAME) [Suspect]
     Indication: EMBOLISM VENOUS
     Dosage: 2.5 MG;QD;PO
     Route: 048
  2. ERLOTINIB (NO PREF. NAME) [Suspect]
     Indication: CHEMOTHERAPY
     Dosage: 150 MG;PO
     Route: 048
  3. PACLITAXEL [Concomitant]
  4. CARBOPLATIN [Concomitant]
  5. GRANISETRON HCL [Concomitant]
  6. DEXAMETHASONE [Concomitant]
  7. DIPHENHYDRAMINE [Concomitant]
  8. CIMETIDINE [Concomitant]
  9. BEVACIZUMAB [Concomitant]
  10. DARBEPOEITIN [Concomitant]
  11. PREV MEDS [Concomitant]

REACTIONS (5)
  - DIARRHOEA [None]
  - DRUG INTERACTION [None]
  - HAEMARTHROSIS [None]
  - INTERNATIONAL NORMALISED RATIO INCREASED [None]
  - RASH GENERALISED [None]
